FAERS Safety Report 7814784-3 (Version None)
Quarter: 2011Q4

REPORT INFORMATION
  Report Type: 
  Country: None (occurrence: None)
  Receive Date: 20111014
  Receipt Date: 20110930
  Transmission Date: 20120403
  Serious: Yes (Hospitalization)
  Sender: FDA-Public Use
  Company Number: GB-ROCHE-784013

PATIENT
  Sex: Female
  Weight: 80 kg

DRUGS (15)
  1. METHOTREXATE [Concomitant]
     Indication: WEGENER'S GRANULOMATOSIS
  2. CANDESARTAN CILEXETIL [Concomitant]
  3. CALCIUM CARBONATE [Concomitant]
  4. FOLIC ACID [Concomitant]
  5. OMEPRAZOLE [Concomitant]
  6. ONDANSETRON [Concomitant]
  7. MYCOPHENOLATE MOFETIL [Suspect]
     Indication: WEGENER'S GRANULOMATOSIS
     Route: 065
  8. PREDNISOLONE [Concomitant]
     Dosage: ALTERNATE DAYS
  9. PREDNISOLONE [Concomitant]
  10. DAPSONE [Concomitant]
  11. DOXYCYCLINE [Concomitant]
  12. ALENDRONATE SODIUM [Concomitant]
  13. ENALAPRIL MALEATE [Concomitant]
  14. SODIUM BICARBONATE [Concomitant]
  15. WARFARIN SODIUM [Concomitant]

REACTIONS (2)
  - WEGENER'S GRANULOMATOSIS [None]
  - CONDITION AGGRAVATED [None]
